FAERS Safety Report 4619334-0 (Version None)
Quarter: 2005Q2

REPORT INFORMATION
  Report Type: 
  Country: None (occurrence: None)
  Receive Date: 20050321
  Receipt Date: 20040315
  Transmission Date: 20051028
  Serious: Yes (Other)
  Sender: FDA-Public Use
  Company Number: 2004-03-1058

PATIENT
  Age: 46 Year
  Sex: Female
  Weight: 87.0906 kg

DRUGS (3)
  1. PEG-INTRON [Suspect]
     Indication: HEPATITIS C
     Dosage: 150 MCG QWK SUBCUTANEOUS
     Route: 058
     Dates: start: 20031215, end: 20040311
  2. REBETOL [Suspect]
     Indication: HEPATITIS C
     Dosage: 1200 MG QD ORAL
     Route: 048
     Dates: start: 20031215, end: 20040311
  3. SULFAMETHOXAZOLE [Concomitant]

REACTIONS (4)
  - HYPERTHYROIDISM [None]
  - RETINAL EXUDATES [None]
  - RETINAL INFARCTION [None]
  - WHITE BLOOD CELL COUNT DECREASED [None]
